FAERS Safety Report 7494103-5 (Version None)
Quarter: 2011Q2

REPORT INFORMATION
  Report Type: 
  Country: None (occurrence: None)
  Receive Date: 20110520
  Receipt Date: 20110516
  Transmission Date: 20111010
  Serious: Yes (Hospitalization, Other)
  Sender: FDA-Public Use
  Company Number: US-ABBOTT-11P-163-0726653-00

PATIENT
  Age: 66 Year
  Sex: Female

DRUGS (5)
  1. FOSAMAX [Concomitant]
     Indication: OSTEOARTHRITIS
  2. HUMIRA [Suspect]
     Indication: RHEUMATOID ARTHRITIS
     Dates: end: 20110324
  3. SULFASALAZINE [Concomitant]
     Indication: RHEUMATOID ARTHRITIS
  4. PREDNISONE [Concomitant]
     Indication: RHEUMATOID ARTHRITIS
  5. NORVASC [Concomitant]
     Indication: HYPERTENSION

REACTIONS (5)
  - HYPERTHYROIDISM [None]
  - JOINT CREPITATION [None]
  - RHEUMATOID ARTHRITIS [None]
  - FUNGAL INFECTION [None]
  - DEVICE DISLOCATION [None]
